FAERS Safety Report 12987843 (Version 2)
Quarter: 2016Q4

REPORT INFORMATION
  Report Type: Report from Study
  Country: US (occurrence: US)
  Receive Date: 20161130
  Receipt Date: 20161213
  Transmission Date: 20170207
  Serious: Yes (Hospitalization)
  Sender: FDA-Public Use
  Company Number: PHEH2016US031091

PATIENT
  Age: 51 Year
  Sex: Female
  Weight: 56.25 kg

DRUGS (1)
  1. VOTRIENT [Suspect]
     Active Substance: PAZOPANIB HYDROCHLORIDE
     Indication: PRODUCT USED FOR UNKNOWN INDICATION
     Dosage: 3 DF, (600 MG), QD
     Route: 048

REACTIONS (3)
  - Urinary tract infection [Recovered/Resolved]
  - Pyrexia [Unknown]
  - Pain [Unknown]

NARRATIVE: CASE EVENT DATE: 20160918
